FAERS Safety Report 6167538-0 (Version None)
Quarter: 2009Q2

REPORT INFORMATION
  Report Type: 
  Country: None (occurrence: None)
  Receive Date: 20090424
  Receipt Date: 20080926
  Transmission Date: 20091009
  Serious: No
  Sender: FDA-Public Use
  Company Number: A0750305A

PATIENT

DRUGS (1)
  1. FLOVENT [Suspect]
     Indication: DRUG USE FOR UNKNOWN INDICATION
     Dosage: 2PUFF TWICE PER DAY
     Route: 055

REACTIONS (1)
  - DYSPHONIA [None]
